FAERS Safety Report 18337546 (Version 2)
Quarter: 2021Q2

REPORT INFORMATION
  Report Type: Spontaneous
  Country: US (occurrence: US)
  Receive Date: 20201002
  Receipt Date: 20210401
  Transmission Date: 20210717
  Serious: No
  Sender: FDA-Public Use
  Company Number: US-SPARK THERAPEUTICS, INC.-US-SPK-20-00090

PATIENT
  Age: 27 Year
  Sex: Female

DRUGS (4)
  1. LUXTURNA [Suspect]
     Active Substance: VORETIGENE NEPARVOVEC-RZYL
     Dosage: 150 UNITS (0.3 ML), LEFT EYE
     Route: 031
     Dates: start: 20200721, end: 20200721
  2. LUXTURNA [Suspect]
     Active Substance: VORETIGENE NEPARVOVEC-RZYL
     Indication: LEBER^S CONGENITAL AMAUROSIS
     Dosage: RIGHT EYE
     Dates: start: 2016, end: 2016
  3. LUXTURNA [Suspect]
     Active Substance: VORETIGENE NEPARVOVEC-RZYL
     Dosage: LEFT EYE
     Dates: start: 20200721, end: 20200721
  4. LUXTURNA [Suspect]
     Active Substance: VORETIGENE NEPARVOVEC-RZYL
     Indication: LEBER^S CONGENITAL AMAUROSIS
     Dosage: 150 UNITS (0.3 ML) RIGHT EYE
     Route: 031
     Dates: start: 2016, end: 2016

REACTIONS (1)
  - Eye pain [Recovered/Resolved]

NARRATIVE: CASE EVENT DATE: 20200721
